FAERS Safety Report 24202578 (Version 3)
Quarter: 2025Q2

REPORT INFORMATION
  Report Type: Report from Study
  Country: IT (occurrence: IT)
  Receive Date: 20240813
  Receipt Date: 20250601
  Transmission Date: 20250717
  Serious: Yes (Other)
  Sender: STEMLINE THERAPEUTICS
  Company Number: IT-STEMLINE THERAPEUTICS, INC-2024-STML-IT000003

PATIENT

DRUGS (2)
  1. ELACESTRANT [Suspect]
     Active Substance: ELACESTRANT
     Indication: Breast cancer metastatic
     Dosage: 345 MG, DAILY, CYCLE 1
     Route: 048
     Dates: start: 20240719, end: 20240729
  2. ELACESTRANT [Suspect]
     Active Substance: ELACESTRANT
     Dosage: 258 MG, DAILY, DAY 1 OF 2 CYCLE
     Route: 048
     Dates: start: 20240823, end: 20240824

REACTIONS (1)
  - Rash [Recovered/Resolved]

NARRATIVE: CASE EVENT DATE: 20240823
